FAERS Safety Report 12187304 (Version 1)
Quarter: 2016Q1

REPORT INFORMATION
  Report Type: Spontaneous
  Country: US (occurrence: US)
  Receive Date: 20160317
  Receipt Date: 20160317
  Transmission Date: 20160526
  Serious: No
  Sender: FDA-Public Use
  Company Number: US-ENDO PHARMACEUTICALS INC.-2015-001361

PATIENT
  Age: 78 Year
  Sex: Male
  Weight: 74.91 kg

DRUGS (2)
  1. PRIMIDONE TABLETS [Suspect]
     Active Substance: PRIMIDONE
     Indication: TREMOR
     Route: 048
     Dates: start: 20150501, end: 20150514
  2. PRIMIDONE TABLETS [Suspect]
     Active Substance: PRIMIDONE
     Route: 048
     Dates: start: 20150514, end: 20150608

REACTIONS (2)
  - Off label use [Recovered/Resolved]
  - Drug ineffective for unapproved indication [Recovered/Resolved]

NARRATIVE: CASE EVENT DATE: 20150501
